FAERS Safety Report 14936343 (Version 2)
Quarter: 2018Q2

REPORT INFORMATION
  Report Type: Spontaneous
  Country: US (occurrence: US)
  Receive Date: 20180524
  Receipt Date: 20180620
  Transmission Date: 20180711
  Serious: No
  Sender: FDA-Public Use
  Company Number: US-CELGENEUS-USA-20180508351

PATIENT
  Sex: Male

DRUGS (2)
  1. OTEZLA [Suspect]
     Active Substance: APREMILAST
     Indication: PSORIATIC ARTHROPATHY
     Route: 048
     Dates: start: 201707, end: 201804
  2. HALOG [Concomitant]
     Active Substance: HALCINONIDE
     Indication: PSORIATIC ARTHROPATHY
     Route: 061
     Dates: start: 201701, end: 201804

REACTIONS (2)
  - Drug ineffective [Unknown]
  - Arthralgia [Unknown]
